FAERS Safety Report 24350498 (Version 1)
Quarter: 2024Q3

REPORT INFORMATION
  Report Type: Spontaneous
  Country: IT (occurrence: IT)
  Receive Date: 20240923
  Receipt Date: 20240923
  Transmission Date: 20241016
  Serious: No
  Sender: ROCHE
  Company Number: None

PATIENT
  Age: 33 Year
  Sex: Female

DRUGS (3)
  1. TRAZIMERA [Suspect]
     Active Substance: TRASTUZUMAB-QYYP
     Indication: Breast cancer
     Route: 065
     Dates: start: 20240125, end: 20240125
  2. PERJETA [Suspect]
     Active Substance: PERTUZUMAB
     Indication: Breast cancer
     Route: 065
     Dates: start: 20240125, end: 20240125
  3. PACLITAXEL [Concomitant]
     Active Substance: PACLITAXEL
     Dosage: THERAPEUTIC SCHEME: G1, G8, G15 --} Q28
     Route: 065
     Dates: start: 20240118, end: 20240118

REACTIONS (2)
  - Headache [Recovered/Resolved]
  - Epistaxis [Recovered/Resolved]

NARRATIVE: CASE EVENT DATE: 20240126
